FAERS Safety Report 9695368 (Version 1)
Quarter: 2013Q4

REPORT INFORMATION
  Report Type: Spontaneous
  Country: US (occurrence: None)
  Receive Date: 20131118
  Receipt Date: 20131118
  Transmission Date: 20140711
  Serious: Yes (Other)
  Sender: FDA-Public Use
  Company Number: None

PATIENT
  Age: 59 Year
  Sex: Male

DRUGS (8)
  1. XTANDI [Suspect]
     Indication: PROSTATE CANCER
     Route: 048
     Dates: start: 20130917
  2. SYMBICORT [Concomitant]
  3. PREDNISONE [Concomitant]
  4. VENTOLIN [Concomitant]
  5. IBUPROFEN [Concomitant]
  6. MORPHINE [Concomitant]
  7. GABAPENTINE [Concomitant]
  8. OXYCODONE [Concomitant]

REACTIONS (2)
  - White blood cell count decreased [None]
  - Platelet count decreased [None]
